FAERS Safety Report 9657455 (Version 1)
Quarter: 2013Q4

REPORT INFORMATION
  Report Type: Spontaneous
  Country: SG (occurrence: SG)
  Receive Date: 20131030
  Receipt Date: 20131030
  Transmission Date: 20140711
  Serious: Yes (Other)
  Sender: FDA-Public Use
  Company Number: SG-PFIZER INC-2013309431

PATIENT
  Age: 70 Year
  Sex: Female

DRUGS (1)
  1. AMLODIPINE BESILATE [Suspect]
     Dosage: UNK

REACTIONS (2)
  - Headache [Recovered/Resolved]
  - Local swelling [Recovered/Resolved]
